FAERS Safety Report 11222328 (Version 1)
Quarter: 2015Q2

REPORT INFORMATION
  Report Type: Spontaneous
  Country: DK (occurrence: DK)
  Receive Date: 20150626
  Receipt Date: 20150626
  Transmission Date: 20150821
  Serious: Yes (Hospitalization)
  Sender: FDA-Public Use
  Company Number: DK-TEVA-572239ISR

PATIENT
  Age: 70 Year
  Sex: Male

DRUGS (2)
  1. MALFIN [Suspect]
     Active Substance: MORPHINE SULFATE
     Dosage: 30 MILLIGRAM DAILY;
     Dates: start: 20141113
  2. MALFIN [Suspect]
     Active Substance: MORPHINE SULFATE
     Indication: PAIN
     Dosage: 20 MILLIGRAM DAILY;
     Dates: start: 20141111, end: 20141112

REACTIONS (8)
  - Delirium [Recovered/Resolved]
  - Refusal of treatment by patient [Unknown]
  - Overdose [Unknown]
  - Haematemesis [Unknown]
  - Abdominal pain upper [Unknown]
  - Constipation [Unknown]
  - Malaise [Unknown]
  - Patient restraint [Recovered/Resolved]

NARRATIVE: CASE EVENT DATE: 201411
